FAERS Safety Report 7379250-0 (Version None)
Quarter: 2011Q1

REPORT INFORMATION
  Report Type: 
  Country: None (occurrence: None)
  Receive Date: 20110328
  Receipt Date: 20101019
  Transmission Date: 20110831
  Serious: Yes (Hospitalization, Other)
  Sender: FDA-Public Use
  Company Number: AU-AMGEN-AUSSP2010000399

PATIENT
  Sex: Female

DRUGS (1)
  1. NEUPOGEN [Suspect]
     Indication: PRODUCT USED FOR UNKNOWN INDICATION
     Dosage: UNK A?G, UNK
     Dates: start: 20091101

REACTIONS (7)
  - NEUTROPHIL COUNT DECREASED [None]
  - NEEDLE ISSUE [None]
  - ECZEMA [None]
  - RASH ERYTHEMATOUS [None]
  - INJECTION SITE PAIN [None]
  - WHITE BLOOD CELL COUNT DECREASED [None]
  - MALAISE [None]
